FAERS Safety Report 5332240-1 (Version None)
Quarter: 2007Q2

REPORT INFORMATION
  Report Type: 
  Country: None (occurrence: None)
  Receive Date: 20070523
  Receipt Date: 20070510
  Transmission Date: 20071010
  Serious: Yes (Death)
  Sender: FDA-Public Use
  Company Number: IL-ASTRAZENECA-2007SE02639

PATIENT
  Age: 79 Year
  Sex: Female

DRUGS (7)
  1. FASLODEX [Suspect]
     Indication: BREAST CANCER
     Route: 030
     Dates: start: 20070503, end: 20070503
  2. MORPHINE [Suspect]
     Dates: start: 20070503
  3. CONVERTIN [Concomitant]
     Indication: HYPERTENSION
  4. PERMADEX [Concomitant]
  5. LOSEC [Concomitant]
  6. CITALOPRAM HYDROBROMIDE [Concomitant]
  7. LAXADINE [Concomitant]

REACTIONS (1)
  - DEATH [None]
